FAERS Safety Report 9792853 (Version 1)
Quarter: 2014Q1

REPORT INFORMATION
  Report Type: Spontaneous
  Country: US (occurrence: US)
  Receive Date: 20140102
  Receipt Date: 20140102
  Transmission Date: 20141002
  Serious: No
  Sender: FDA-Public Use
  Company Number: US-SANOFI-AVENTIS-2013SA045638

PATIENT
  Age: 68 Year
  Sex: Female
  Weight: 105.23 kg

DRUGS (3)
  1. AUBAGIO [Suspect]
     Indication: MULTIPLE SCLEROSIS
     Route: 048
     Dates: start: 20130414, end: 20130809
  2. AUBAGIO [Suspect]
     Indication: MULTIPLE SCLEROSIS
     Route: 048
     Dates: start: 20130414, end: 20130809
  3. GABAPENTIN [Concomitant]
     Indication: NEUROPATHY PERIPHERAL

REACTIONS (8)
  - Arthritis [Recovered/Resolved]
  - Back disorder [Not Recovered/Not Resolved]
  - Pain [Not Recovered/Not Resolved]
  - Muscle spasms [Not Recovered/Not Resolved]
  - Nausea [Not Recovered/Not Resolved]
  - Hypoaesthesia [Recovered/Resolved]
  - Burning sensation [Not Recovered/Not Resolved]
  - Platelet count decreased [Unknown]
